FAERS Safety Report 8761947 (Version 1)
Quarter: 2012Q4

REPORT INFORMATION
  Report Type: 
  Country: US (occurrence: US)
  Receive Date: 20120830
  Receipt Date: 20120830
  Transmission Date: 20130627
  Serious: No
  Sender: FDA-Public Use
  Company Number: US-ASTRAZENECA-2012SE57143

PATIENT
  Age: 34 Year
  Sex: Male
  Weight: 72.6 kg

DRUGS (9)
  1. SEROQUEL [Suspect]
     Indication: ANXIETY
     Route: 048
  2. SEROQUEL [Suspect]
     Indication: INSOMNIA
     Route: 048
  3. SEROQUEL [Suspect]
     Indication: ANXIETY
     Dosage: 150 MG IN THE AFTERNOON
     Route: 048
  4. SEROQUEL [Suspect]
     Indication: INSOMNIA
     Dosage: 150 MG IN THE AFTERNOON
     Route: 048
  5. SEROQUEL [Suspect]
     Indication: ANXIETY
     Route: 048
  6. SEROQUEL [Suspect]
     Indication: INSOMNIA
     Route: 048
  7. SEROQUEL [Suspect]
     Indication: ANXIETY
     Route: 048
  8. SEROQUEL [Suspect]
     Indication: INSOMNIA
     Route: 048
  9. DIAZEOAM [Concomitant]

REACTIONS (4)
  - Intentional drug misuse [Unknown]
  - Activities of daily living impaired [Unknown]
  - Somnolence [Unknown]
  - Fatigue [Unknown]
